FAERS Safety Report 13155879 (Version 1)
Quarter: 2017Q1

REPORT INFORMATION
  Report Type: Spontaneous
  Country: US (occurrence: US)
  Receive Date: 20170126
  Receipt Date: 20170126
  Transmission Date: 20170428
  Serious: No
  Sender: FDA-Public Use
  Company Number: US-ROCHE-780963

PATIENT
  Sex: Female
  Weight: 81.8 kg

DRUGS (4)
  1. PREMARIN [Concomitant]
     Active Substance: ESTROGENS, CONJUGATED
  2. VALIUM [Suspect]
     Active Substance: DIAZEPAM
     Indication: MIGRAINE
     Route: 048
  3. DIAZEPAM. [Suspect]
     Active Substance: DIAZEPAM
     Indication: MIGRAINE
     Route: 048
  4. VALIUM [Suspect]
     Active Substance: DIAZEPAM
     Route: 048

REACTIONS (2)
  - Gastrointestinal disorder [Unknown]
  - Adverse drug reaction [Unknown]
